FAERS Safety Report 5919857-8 (Version None)
Quarter: 2008Q4

REPORT INFORMATION
  Report Type: 
  Country: None (occurrence: None)
  Receive Date: 20081015
  Receipt Date: 20081007
  Transmission Date: 20090506
  Serious: Yes (Other)
  Sender: FDA-Public Use
  Company Number: FR-PFIZER INC-2008084753

PATIENT
  Sex: Female

DRUGS (8)
  1. TAHOR [Suspect]
     Route: 048
     Dates: start: 20080611, end: 20080614
  2. KEPPRA [Suspect]
     Route: 042
     Dates: start: 20080611, end: 20080614
  3. NIMOTOP [Suspect]
     Route: 042
     Dates: start: 20080611, end: 20080614
  4. HYPNOVEL [Suspect]
     Route: 042
     Dates: start: 20080611, end: 20080613
  5. SUFENTA PRESERVATIVE FREE [Suspect]
     Route: 042
     Dates: start: 20080611, end: 20080613
  6. LOXEN [Concomitant]
     Dates: start: 20080611
  7. EUPRESSYL [Concomitant]
     Dates: start: 20080611
  8. MOPRAL [Concomitant]
     Dates: start: 20080611

REACTIONS (1)
  - TOXIC EPIDERMAL NECROLYSIS [None]
